FAERS Safety Report 16980293 (Version 1)
Quarter: 2019Q4

REPORT INFORMATION
  Report Type: Report from Study
  Country: US (occurrence: US)
  Receive Date: 20191031
  Receipt Date: 20191031
  Transmission Date: 20200122
  Serious: Yes (Hospitalization)
  Sender: FDA-Public Use
  Company Number: US-GILEAD-2019-0435015

PATIENT
  Age: 51 Year
  Sex: Male

DRUGS (11)
  1. CARVEDILOL. [Concomitant]
     Active Substance: CARVEDILOL
  2. SPIRONOLACTONE. [Concomitant]
     Active Substance: SPIRONOLACTONE
  3. XIFAXAN [Concomitant]
     Active Substance: RIFAXIMIN
  4. OMEPRAZOLE. [Concomitant]
     Active Substance: OMEPRAZOLE
  5. ALBUTEROL [SALBUTAMOL] [Concomitant]
     Active Substance: ALBUTEROL
  6. CEFUROXIME. [Concomitant]
     Active Substance: CEFUROXIME
  7. HYDROXY [Concomitant]
  8. AMBRISENTAN [Suspect]
     Active Substance: AMBRISENTAN
     Indication: PULMONARY ARTERIAL HYPERTENSION
     Dosage: 10 MG, QD
     Route: 065
     Dates: start: 20180824
  9. BUMETANIDE. [Concomitant]
     Active Substance: BUMETANIDE
  10. FUROSEMIDE. [Concomitant]
     Active Substance: FUROSEMIDE
  11. MIDODRINE [Concomitant]
     Active Substance: MIDODRINE

REACTIONS (2)
  - Unevaluable event [Not Recovered/Not Resolved]
  - Intentional dose omission [Not Recovered/Not Resolved]
